FAERS Safety Report 4332882-6 (Version None)
Quarter: 2004Q1

REPORT INFORMATION
  Report Type: 
  Country: None (occurrence: None)
  Receive Date: 20040330
  Receipt Date: 20040319
  Transmission Date: 20041129
  Serious: Yes (Other)
  Sender: FDA-Public Use
  Company Number: SUS1-2004-00094

PATIENT
  Sex: Female

DRUGS (2)
  1. PROAMATINE [Suspect]
     Dosage: 5 MG 3 DIFFERENT TIMES
     Dates: start: 20030501, end: 20030501
  2. DONNATAL (ATROPINE SULFATE, HYSCINE HYDROBROMIDE, HYOSCYAMINE SULFATE [Concomitant]

REACTIONS (3)
  - BLINDNESS TRANSIENT [None]
  - BLINDNESS UNILATERAL [None]
  - VISION BLURRED [None]
